FAERS Safety Report 14164643 (Version 1)
Quarter: 2017Q4

REPORT INFORMATION
  Report Type: Spontaneous
  Country: US (occurrence: US)
  Receive Date: 20171107
  Receipt Date: 20171107
  Transmission Date: 20180321
  Serious: No
  Sender: FDA-Public Use
  Company Number: US-PFIZER INC-2017475301

PATIENT
  Sex: Male

DRUGS (14)
  1. SULFASALAZINE. [Suspect]
     Active Substance: SULFASALAZINE
  2. LEVOTHYROXINE. [Concomitant]
     Active Substance: LEVOTHYROXINE
     Indication: THYROID DISORDER
     Dosage: 125 UG, DAILY
     Route: 048
     Dates: start: 2009
  3. BABY ASPIRIN [Concomitant]
     Active Substance: ASPIRIN
     Indication: BLOOD PRESSURE ABNORMAL
     Dosage: 81 MG, 1X/DAY
     Route: 048
     Dates: start: 201705
  4. METHYLPREDNISOLONE. [Concomitant]
     Active Substance: METHYLPREDNISOLONE
     Indication: INFLAMMATION
     Dosage: 4 MG, 2X/DAY, 2 MG IN AM AND 2 MG AT NIGHT, CUT IN HALF
     Route: 048
     Dates: start: 201306
  5. TURMERIC [Concomitant]
     Active Substance: HERBALS\TURMERIC
     Indication: RHEUMATOID ARTHRITIS
     Dosage: 450 MG, 1X/DAY
     Route: 048
     Dates: start: 201708
  6. ARAVA [Suspect]
     Active Substance: LEFLUNOMIDE
     Dosage: UNK
  7. HYDROMORPHONE [Concomitant]
     Active Substance: HYDROMORPHONE
     Indication: PAIN
     Dosage: 4 MG, AS NEEDED
     Route: 048
     Dates: start: 2011
  8. AMITRIPTYLINE HCL [Concomitant]
     Active Substance: AMITRIPTYLINE
     Indication: SLEEP DISORDER
     Dosage: 25 MG, 1X/DAY, AT NIGHT
     Route: 048
     Dates: start: 2016
  9. FOLIC ACID. [Concomitant]
     Active Substance: FOLIC ACID
     Dosage: 800 UG, DAILY
     Route: 048
     Dates: start: 201709
  10. ARAVA [Suspect]
     Active Substance: LEFLUNOMIDE
     Dosage: UNK
     Dates: start: 2013, end: 2014
  11. LOSARTAN. [Concomitant]
     Active Substance: LOSARTAN
     Indication: BLOOD PRESSURE ABNORMAL
     Dosage: 125 UG, DAILY
     Route: 048
     Dates: start: 2013
  12. HUMIRA [Suspect]
     Active Substance: ADALIMUMAB
     Dosage: UNK
     Dates: start: 2013, end: 2014
  13. OMEPRAZOLE. [Concomitant]
     Active Substance: OMEPRAZOLE
     Indication: BARRETT^S OESOPHAGUS
     Dosage: 20 MG, 2X/DAY
     Route: 048
     Dates: start: 2007
  14. BABY ASPIRIN [Concomitant]
     Active Substance: ASPIRIN
     Indication: FAMILIAL RISK FACTOR

REACTIONS (1)
  - Drug ineffective [Unknown]
